FAERS Safety Report 4571764-1 (Version None)
Quarter: 2005Q1

REPORT INFORMATION
  Report Type: 
  Country: None (occurrence: None)
  Receive Date: 20050202
  Receipt Date: 20050202
  Transmission Date: 20050727
  Serious: Yes (Hospitalization)
  Sender: FDA-Public Use
  Company Number: None

PATIENT
  Age: 83 Year
  Sex: Female
  Weight: 66.7 kg

DRUGS (1)
  1. WARFARIN SODIUM [Suspect]
     Dosage: 2.5MG; 2MG     TUES, SAT; REST   ORAL
     Route: 048

REACTIONS (6)
  - ABDOMINAL PAIN [None]
  - ABDOMINAL WALL DISORDER [None]
  - ANTICOAGULATION DRUG LEVEL ABOVE THERAPEUTIC [None]
  - ASTHENIA [None]
  - HAEMATOMA [None]
  - INTERNATIONAL NORMALISED RATIO INCREASED [None]
